FAERS Safety Report 13753531 (Version 1)
Quarter: 2017Q3

REPORT INFORMATION
  Report Type: Spontaneous
  Country: US (occurrence: US)
  Receive Date: 20170713
  Receipt Date: 20170713
  Transmission Date: 20171127
  Serious: Yes (Life-Threatening, Hospitalization, Other)
  Sender: FDA-Public Use
  Company Number: US-ABBVIE-17P-163-2038294-00

PATIENT
  Age: 14 Year
  Sex: Male

DRUGS (4)
  1. VALPROIC ACID. [Suspect]
     Active Substance: VALPROIC ACID
     Indication: SCHIZOPHRENIFORM DISORDER
     Dosage: EXTENDED RELEASE
     Route: 048
  2. CHLORPROMAZINE. [Suspect]
     Active Substance: CHLORPROMAZINE
     Indication: SCHIZOPHRENIFORM DISORDER
     Route: 065
  3. OLANZAPINE. [Suspect]
     Active Substance: OLANZAPINE
     Indication: SCHIZOPHRENIFORM DISORDER
     Route: 048
  4. RISPERIDONE. [Suspect]
     Active Substance: RISPERIDONE
     Indication: SCHIZOPHRENIFORM DISORDER
     Route: 048

REACTIONS (30)
  - Restlessness [Unknown]
  - Verbigeration [Unknown]
  - Stereotypy [Unknown]
  - Psychomotor hyperactivity [Unknown]
  - Neuroleptic malignant syndrome [Unknown]
  - Rash [Unknown]
  - Psychotic disorder [Unknown]
  - Echolalia [Unknown]
  - Distractibility [Unknown]
  - Mutism [Unknown]
  - Pyrexia [Unknown]
  - Blood pressure systolic increased [Unknown]
  - White blood cell count increased [Unknown]
  - Chills [Unknown]
  - Vomiting [Unknown]
  - Grandiosity [Unknown]
  - Posturing [Unknown]
  - Agitation [Unknown]
  - Condition aggravated [Unknown]
  - Aspartate aminotransferase increased [Unknown]
  - Aggression [Unknown]
  - Pressure of speech [Unknown]
  - Tachycardia [Unknown]
  - Blood creatine phosphokinase increased [Unknown]
  - Insomnia [Unknown]
  - Confusional state [Unknown]
  - Staring [Unknown]
  - Catatonia [Unknown]
  - Abnormal behaviour [Unknown]
  - Paranoia [Unknown]
